FAERS Safety Report 20974866 (Version 1)
Quarter: 2022Q2

REPORT INFORMATION
  Report Type: Spontaneous
  Country: US (occurrence: None)
  Receive Date: 20220617
  Receipt Date: 20220617
  Transmission Date: 20220720
  Serious: Yes (Hospitalization)
  Sender: FDA-Public Use
  Company Number: None

PATIENT
  Sex: Male
  Weight: 85.46 kg

DRUGS (3)
  1. DARATUMUMAB\HYALURONIDASE-FIHJ [Suspect]
     Active Substance: DARATUMUMAB\HYALURONIDASE-FIHJ
     Dates: end: 20220526
  2. DEXAMETHASONE [Suspect]
     Active Substance: DEXAMETHASONE
     Dates: end: 20220526
  3. LENALIDOMIDE [Suspect]
     Active Substance: LENALIDOMIDE
     Indication: Product used for unknown indication
     Dates: end: 20220530

REACTIONS (11)
  - Diverticulitis [None]
  - White blood cell count decreased [None]
  - Neutrophil count decreased [None]
  - Neck pain [None]
  - Fatigue [None]
  - Decreased appetite [None]
  - Therapy change [None]
  - Headache [None]
  - Joint range of motion decreased [None]
  - Wrong schedule [None]
  - Product administration error [None]

NARRATIVE: CASE EVENT DATE: 20220530
